FAERS Safety Report 16188403 (Version 1)
Quarter: 2019Q2

REPORT INFORMATION
  Report Type: Spontaneous
  Country: US (occurrence: US)
  Receive Date: 20190412
  Receipt Date: 20190412
  Transmission Date: 20190711
  Serious: No
  Sender: FDA-Public Use
  Company Number: US-GLAXOSMITHKLINE-US2019063589

PATIENT
  Age: 72 Year
  Sex: Male

DRUGS (1)
  1. EXCEDRIN MIGRAINE [Suspect]
     Active Substance: ACETAMINOPHEN\ASPIRIN\CAFFEINE
     Indication: HEADACHE
     Dosage: UNK UNK, PRN

REACTIONS (4)
  - Pruritus [Recovering/Resolving]
  - Papule [Recovering/Resolving]
  - Blister [Recovering/Resolving]
  - Drug hypersensitivity [Recovering/Resolving]
